FAERS Safety Report 6508195-0 (Version None)
Quarter: 2009Q4

REPORT INFORMATION
  Report Type: 
  Country: None (occurrence: None)
  Receive Date: 20091221
  Receipt Date: 20081219
  Transmission Date: 20100525
  Serious: No
  Sender: FDA-Public Use
  Company Number: US-ASTRAZENECA-2008UW28465

PATIENT
  Age: 57 Year
  Sex: Male
  Weight: 95.3 kg

DRUGS (8)
  1. CRESTOR [Suspect]
     Indication: BLOOD CHOLESTEROL INCREASED
     Route: 048
     Dates: start: 20081015, end: 20081101
  2. CRESTOR [Suspect]
     Route: 048
     Dates: start: 20081101
  3. NIACIN [Concomitant]
  4. NIACIN [Concomitant]
     Dates: start: 20081220
  5. ASCORBIC ACID [Concomitant]
  6. ZOLOFT [Concomitant]
  7. TOPROL-XL [Concomitant]
     Route: 048
  8. ASPIRIN [Concomitant]

REACTIONS (3)
  - BLOOD CHOLESTEROL INCREASED [None]
  - BLOOD TRIGLYCERIDES INCREASED [None]
  - DRUG INEFFECTIVE [None]
